FAERS Safety Report 23764270 (Version 2)
Quarter: 2024Q2

REPORT INFORMATION
  Report Type: Spontaneous
  Country: US (occurrence: US)
  Receive Date: 20240420
  Receipt Date: 20240523
  Transmission Date: 20240716
  Serious: No
  Sender: FDA-Public Use
  Company Number: US-ABBVIE-5724230

PATIENT
  Sex: Male
  Weight: 145 kg

DRUGS (1)
  1. BOTOX [Suspect]
     Active Substance: ONABOTULINUMTOXINA
     Indication: Anal spasm
     Dosage: TIME INTERVAL: AS NECESSARY
     Route: 065
     Dates: start: 20240322, end: 20240322

REACTIONS (11)
  - Paresis anal sphincter [Unknown]
  - Haemorrhoids [Unknown]
  - Abdominal pain [Unknown]
  - Anal spasm [Unknown]
  - Diarrhoea [Unknown]
  - Haemorrhage [Unknown]
  - Flatulence [Unknown]
  - Adverse drug reaction [Unknown]
  - Off label use [Not Recovered/Not Resolved]
  - Weight decreased [Unknown]
  - Food poisoning [Unknown]

NARRATIVE: CASE EVENT DATE: 20240101
